FAERS Safety Report 6522272-X (Version None)
Quarter: 2009Q4

REPORT INFORMATION
  Report Type: 
  Country: None (occurrence: None)
  Receive Date: 20091230
  Receipt Date: 20091218
  Transmission Date: 20100525
  Serious: Yes (Other)
  Sender: FDA-Public Use
  Company Number: JP-AMGEN-US382777

PATIENT
  Age: 66 Year
  Sex: Female

DRUGS (6)
  1. ENBREL [Suspect]
     Indication: RHEUMATOID ARTHRITIS
     Route: 058
     Dates: start: 20090427, end: 20091023
  2. ENBREL [Suspect]
     Route: 058
     Dates: start: 20091102
  3. RHEUMATREX [Concomitant]
     Dates: start: 20081201, end: 20090201
  4. RHEUMATREX [Concomitant]
     Dates: start: 20090201
  5. ISONIAZID [Concomitant]
  6. SULFASALAZINE [Concomitant]
     Indication: RHEUMATOID ARTHRITIS
     Dosage: 1000 MG; UNSPECIFIED FREQUENCY
     Route: 048
     Dates: start: 20050101

REACTIONS (3)
  - HEPATITIS B ANTIGEN POSITIVE [None]
  - KNEE ARTHROPLASTY [None]
  - LIVER DISORDER [None]
